FAERS Safety Report 22894982 (Version 2)
Quarter: 2023Q4

REPORT INFORMATION
  Report Type: Report from Study
  Country: FR (occurrence: FR)
  Receive Date: 20230901
  Receipt Date: 20231120
  Transmission Date: 20240109
  Serious: Yes (Other)
  Sender: FDA-Public Use
  Company Number: FR-JNJFOC-20230867551

PATIENT
  Age: 10 Year
  Sex: Male
  Weight: 70.5 kg

DRUGS (2)
  1. INFLIXIMAB [Suspect]
     Active Substance: INFLIXIMAB
     Indication: Inflammatory bowel disease
     Route: 041
     Dates: start: 20110210, end: 20130902
  2. STELARA [Concomitant]
     Active Substance: USTEKINUMAB
     Indication: Inflammatory bowel disease
     Dates: start: 20200207, end: 2022

REACTIONS (1)
  - Groin abscess [Recovered/Resolved]

NARRATIVE: CASE EVENT DATE: 20221019
